FAERS Safety Report 8583780-3 (Version None)
Quarter: 2012Q3

REPORT INFORMATION
  Report Type: 
  Country: None (occurrence: None)
  Receive Date: 20120810
  Receipt Date: 20120727
  Transmission Date: 20120928
  Serious: Yes (Hospitalization, Other)
  Sender: FDA-Public Use
  Company Number: JP-009507513-2012SP021993

PATIENT

DRUGS (19)
  1. TELAVIC [Suspect]
     Dosage: 1500 MG, ONCE
     Route: 048
     Dates: start: 20120225
  2. OLMESARTAN MEDOXOMIL [Concomitant]
     Indication: PROPHYLAXIS
     Dosage: 20 MG, QD
     Route: 048
     Dates: start: 20120222
  3. CLARITIN [Concomitant]
     Indication: PRODUCT USED FOR UNKNOWN INDICATION
     Dosage: 10 MG, QD
     Route: 048
     Dates: start: 20120227
  4. PEGINTERFERON ALFA-2B [Suspect]
     Indication: HEPATITIS C
     Dosage: 0.75 ?G/KG, QW
     Route: 058
     Dates: start: 20120222
  5. REBETOL [Suspect]
     Dosage: 400 MG, QD
     Route: 048
     Dates: start: 20120302, end: 20120411
  6. PEG-INTRON [Suspect]
     Indication: HEPATITIS C
     Dosage: UNK MICROGRAM PER KILOGRAM, UNK
     Route: 051
     Dates: start: 20120222
  7. OLMESARTAN MEDOXOMIL [Concomitant]
     Indication: HYPERTENSION
  8. ANTIVIRAL (UNSPECIFIED) [Suspect]
     Indication: HEPATITIS C
     Dosage: 2250 MG, QD
     Route: 048
     Dates: start: 20120222, end: 20120224
  9. ALLOPURINOL [Concomitant]
     Indication: HEPATITIS C
     Dosage: DAILY DOSE UNKNOWN
     Route: 048
     Dates: start: 20120224
  10. REBETOL [Suspect]
     Indication: HEPATITIS C
     Dosage: 600 MG, QD
     Route: 048
     Dates: start: 20120222, end: 20120301
  11. TELAVIC [Suspect]
     Indication: HEPATITIS C
     Dosage: 2250 MG, ONCE
     Route: 048
     Dates: start: 20120222, end: 20120224
  12. ACETAMINOPHEN [Concomitant]
     Indication: HEPATITIS C
     Dosage: AS NEEDED
     Route: 048
     Dates: start: 20120222
  13. ALLEGRA [Concomitant]
     Indication: PRODUCT USED FOR UNKNOWN INDICATION
     Dosage: DAILY DOSE UNKNOWN
     Route: 048
     Dates: start: 20120227
  14. CELESTAMINE TAB [Concomitant]
     Indication: RASH
     Dosage: UNK UNK, UNKNOWN
     Route: 065
     Dates: start: 20120226
  15. REBETOL [Suspect]
     Dosage: 200 MG, QD
     Route: 048
     Dates: start: 20120412
  16. ANTIVIRAL (UNSPECIFIED) [Suspect]
     Dosage: 1500 MG, QD
     Route: 048
     Dates: start: 20120225
  17. BERIZYM (ASPERGILLUS ORYZAE EXTRACT (+) CELLULASE (+) LIPASE (+) PANCR [Concomitant]
     Indication: HEPATITIS C
     Route: 048
     Dates: start: 20120309
  18. ASPERGILLUS ORYZAE EXTRACT (+) CELLULASE (+) LIPASE (+) PANCREATIN [Concomitant]
     Indication: HEPATITIS C
     Dosage: FORMULATION POR,DAILY DOSE UNKNOWN
     Route: 048
     Dates: start: 20120309
  19. MYSER (CYCLOSERINE) [Concomitant]
     Indication: RASH
     Dosage: UNK UNK, UNKNOWN
     Route: 065
     Dates: start: 20120226

REACTIONS (6)
  - AMYLASE INCREASED [None]
  - ANAEMIA [None]
  - PLATELET COUNT DECREASED [None]
  - RENAL DISORDER [None]
  - HYPERURICAEMIA [None]
  - NEUTROPHIL COUNT DECREASED [None]
